FAERS Safety Report 6522187-7 (Version None)
Quarter: 2009Q4

REPORT INFORMATION
  Report Type: 
  Country: None (occurrence: None)
  Receive Date: 20091229
  Receipt Date: 20091229
  Transmission Date: 20100525
  Serious: Yes (Life-Threatening)
  Sender: FDA-Public Use
  Company Number: None

PATIENT
  Age: 64 Year
  Sex: Male

DRUGS (2)
  1. HEPARIN [Suspect]
     Indication: DEEP VEIN THROMBOSIS
     Dosage: 5000 SC TID; INFUSION
  2. HEPARIN [Suspect]
     Indication: THROMBOSIS PROPHYLAXIS
     Dosage: 5000 SC TID; INFUSION

REACTIONS (5)
  - CATHETER SITE HAEMORRHAGE [None]
  - CENTRAL NERVOUS SYSTEM LESION [None]
  - PLATELET COUNT DECREASED [None]
  - SEPTIC SHOCK [None]
  - SUBARACHNOID HAEMORRHAGE [None]
